FAERS Safety Report 9700681 (Version 1)
Quarter: 2013Q4

REPORT INFORMATION
  Report Type: Report from Study
  Country: BR (occurrence: BR)
  Receive Date: 20131121
  Receipt Date: 20131121
  Transmission Date: 20140711
  Serious: Yes (Death)
  Sender: FDA-Public Use
  Company Number: PHHY2013BR132336

PATIENT
  Sex: Male
  Weight: 56 kg

DRUGS (3)
  1. EXELON PATCH [Suspect]
     Indication: PARKINSON^S DISEASE
     Dosage: UNK UKN, QD
     Route: 062
     Dates: end: 201204
  2. PROLOPA [Concomitant]
     Indication: PARKINSON^S DISEASE
     Dosage: UNK UKN, UNK
     Dates: start: 2004, end: 201204
  3. SEROQUEL [Concomitant]
     Indication: SLEEP DISORDER
     Dosage: UNK UKN, UNK
     Dates: start: 2004, end: 201204

REACTIONS (3)
  - Pneumonia [Fatal]
  - Parkinson^s disease [Fatal]
  - Death [Fatal]
